FAERS Safety Report 9555993 (Version 1)
Quarter: 2013Q3

REPORT INFORMATION
  Report Type: Spontaneous
  Country: IE (occurrence: None)
  Receive Date: 20130924
  Receipt Date: 20130924
  Transmission Date: 20140515
  Serious: Yes (Other)
  Sender: FDA-Public Use
  Company Number: B0924496A

PATIENT
  Age: 32 Year
  Sex: Male

DRUGS (1)
  1. ROPINIROLE HYDROCHLORIDE [Suspect]
     Indication: PARKINSON^S DISEASE
     Dosage: 8 MG/ PER DAY

REACTIONS (7)
  - Impulse-control disorder [None]
  - Binge eating [None]
  - Pathological gambling [None]
  - Irritability [None]
  - Frustration [None]
  - Suicidal ideation [None]
  - Condition aggravated [None]
